FAERS Safety Report 4591670-6 (Version None)
Quarter: 2005Q1

REPORT INFORMATION
  Report Type: 
  Country: None (occurrence: None)
  Receive Date: 20050218
  Receipt Date: 20050209
  Transmission Date: 20050727
  Serious: Yes (Life-Threatening, Hospitalization)
  Sender: FDA-Public Use
  Company Number: 2005028641

PATIENT
  Age: 47 Year
  Sex: Female
  Weight: 144 kg

DRUGS (3)
  1. NEURONTIN [Suspect]
     Indication: ILL-DEFINED DISORDER
     Dosage: 1800 MG (1 D), ORAL
     Route: 048
  2. HYDROCODONE BITARTRATE [Suspect]
     Indication: BACK DISORDER
     Dosage: ORAL
     Route: 048
  3. CARISPRODOL (CARISOPRODOL) [Concomitant]
     Indication: BACK DISORDER
     Dosage: ORAL
     Route: 048

REACTIONS (2)
  - COMA [None]
  - INTENTIONAL MISUSE [None]
